FAERS Safety Report 9783351 (Version 1)
Quarter: 2013Q4

REPORT INFORMATION
  Report Type: Spontaneous
  Country: US (occurrence: US)
  Receive Date: 20131226
  Receipt Date: 20131226
  Transmission Date: 20140711
  Serious: Yes (Hospitalization)
  Sender: FDA-Public Use
  Company Number: US-BAYER-2013-156672

PATIENT
  Age: 23 Year
  Sex: Female
  Weight: 95.24 kg

DRUGS (10)
  1. YAZ [Suspect]
     Indication: OVARIAN CYST
  2. YAZ [Suspect]
     Indication: MENSTRUATION IRREGULAR
  3. YASMIN [Suspect]
     Indication: OVARIAN CYST
  4. YASMIN [Suspect]
     Indication: MENSTRUATION IRREGULAR
  5. ULTRACET [Concomitant]
     Dosage: UNK
     Route: 048
     Dates: start: 20060911
  6. MOTRIN [Concomitant]
     Dosage: UNK
     Route: 048
     Dates: start: 20060911
  7. LEVAQUIN [Concomitant]
     Dosage: UNK
     Route: 048
     Dates: start: 20060911
  8. PERCOCET [Concomitant]
     Dosage: UNK
     Route: 048
     Dates: start: 20060911
  9. VALIUM [Concomitant]
     Dosage: UNK
     Route: 048
     Dates: start: 20060911
  10. CLEOCIN [Concomitant]

REACTIONS (1)
  - Pulmonary embolism [None]
